FAERS Safety Report 20089984 (Version 1)
Quarter: 2021Q4

REPORT INFORMATION
  Report Type: Other
  Country: None (occurrence: IT)
  Receive Date: 20211119
  Receipt Date: 20211119
  Transmission Date: 20220303
  Serious: Yes (Hospitalization)
  Sender: FDA-Public Use
  Company Number: IT-Ajanta Pharma USA Inc.-2122055

PATIENT
  Age: 71 Year
  Sex: Male

DRUGS (3)
  1. RISPERIDONE [Suspect]
     Active Substance: RISPERIDONE
     Indication: Bipolar disorder
     Dates: start: 201910
  2. OLANZAPINE [Concomitant]
     Active Substance: OLANZAPINE
  3. LITHIUM CARBONATE [Concomitant]
     Active Substance: LITHIUM CARBONATE

REACTIONS (2)
  - Pemphigoid [Recovered/Resolved]
  - Skin bacterial infection [Recovered/Resolved]

NARRATIVE: CASE EVENT DATE: 20200101
